FAERS Safety Report 6580232-7 (Version None)
Quarter: 2010Q1

REPORT INFORMATION
  Report Type: 
  Country: None (occurrence: None)
  Receive Date: 20100212
  Receipt Date: 20100203
  Transmission Date: 20100710
  Serious: Yes (Other)
  Sender: FDA-Public Use
  Company Number: US-BAYER-201013328NA

PATIENT
  Age: 51 Year
  Sex: Female
  Weight: 78 kg

DRUGS (4)
  1. MAGNEVIST [Suspect]
     Indication: NUCLEAR MAGNETIC RESONANCE IMAGING
     Dosage: LINE FLUSHED, POWER INJECTOR, 2ML INTO RIGHT ANTECUBITAL
     Dates: start: 20091201, end: 20091201
  2. MAGNEVIST [Suspect]
     Dosage: TOTAL DAILY DOSE: 20 ML
     Dates: start: 20100203, end: 20100203
  3. PREDNISONE [Concomitant]
     Dosage: AS USED: 50 MG
     Dates: start: 20100203, end: 20100203
  4. BENADRYL [Concomitant]
     Dates: start: 20100203, end: 20100203

REACTIONS (4)
  - HYPOAESTHESIA ORAL [None]
  - INTRANASAL HYPOAESTHESIA [None]
  - PHARYNGEAL HYPOAESTHESIA [None]
  - SWOLLEN TONGUE [None]
